FAERS Safety Report 14844377 (Version 3)
Quarter: 2018Q3

REPORT INFORMATION
  Report Type: Other
  Country: CA (occurrence: CA)
  Receive Date: 20180503
  Receipt Date: 20180705
  Transmission Date: 20181010
  Serious: Yes (Other)
  Sender: FDA-Public Use
  Company Number: CA-INTERCEPT-PMOCA2018000675

PATIENT

DRUGS (3)
  1. OCALIVA [Suspect]
     Active Substance: OBETICHOLIC ACID
     Indication: PRIMARY BILIARY CHOLANGITIS
     Dosage: 5 MG, QW
     Route: 048
     Dates: start: 20180413, end: 201805
  2. URSO [Suspect]
     Active Substance: URSODIOL
     Dosage: 750 MG, QD
     Route: 048
     Dates: start: 2017
  3. PLAQUENIL [Suspect]
     Active Substance: HYDROXYCHLOROQUINE SULFATE
     Indication: ARTHRALGIA
     Dosage: UNK
     Route: 065
     Dates: start: 20180413, end: 20180420

REACTIONS (18)
  - Rash [Recovered/Resolved]
  - Somnolence [Recovered/Resolved]
  - Anal incontinence [Recovered/Resolved]
  - Nausea [Recovered/Resolved]
  - Thinking abnormal [Recovered/Resolved]
  - Abdominal pain upper [Recovered/Resolved]
  - Insomnia [Recovered/Resolved]
  - Frequent bowel movements [Recovered/Resolved]
  - Proctalgia [Recovered/Resolved]
  - Dyspepsia [Recovered/Resolved]
  - Suicidal ideation [Recovered/Resolved]
  - Intentional self-injury [Recovered/Resolved]
  - Back pain [Recovered/Resolved]
  - Muscle spasms [Recovered/Resolved]
  - Fatigue [Recovered/Resolved]
  - Scab [Recovered/Resolved]
  - Pruritus [Recovered/Resolved]
  - Constipation [Recovered/Resolved]

NARRATIVE: CASE EVENT DATE: 2018
